FAERS Safety Report 8052421-6 (Version None)
Quarter: 2012Q1

REPORT INFORMATION
  Report Type: 
  Country: None (occurrence: None)
  Receive Date: 20120118
  Receipt Date: 20120112
  Transmission Date: 20120608
  Serious: Yes (Hospitalization)
  Sender: FDA-Public Use
  Company Number: FR-PFIZER INC-2012010543

PATIENT
  Age: 34 Year
  Sex: Male

DRUGS (1)
  1. CRIZOTINIB [Suspect]

REACTIONS (1)
  - GENERALISED OEDEMA [None]
